FAERS Safety Report 19643371 (Version 1)
Quarter: 2021Q3

REPORT INFORMATION
  Report Type: Spontaneous
  Country: US (occurrence: US)
  Receive Date: 20210730
  Receipt Date: 20210730
  Transmission Date: 20211014
  Serious: Yes (Hospitalization)
  Sender: FDA-Public Use
  Company Number: US-009507513-2107USA008128

PATIENT
  Sex: Female
  Weight: 113.38 kg

DRUGS (12)
  1. KEYTRUDA [Suspect]
     Active Substance: PEMBROLIZUMAB
  2. VITAMIN D3 [Concomitant]
     Active Substance: CHOLECALCIFEROL
  3. CHONDROITIN;GLUCOSAMINE [Concomitant]
  4. LENVATINIB MESYLATE [Suspect]
     Active Substance: LENVATINIB MESYLATE
     Dosage: 10 MG/4 MG DAILY (5 DAY PK)
     Route: 048
     Dates: start: 20200210
  5. BELSOMRA [Concomitant]
     Active Substance: SUVOREXANT
  6. VITAMIN C [Concomitant]
     Active Substance: ASCORBIC ACID
  7. CALCIUM CARBONATE. [Concomitant]
     Active Substance: CALCIUM CARBONATE
  8. STOOL SOFTENER (DOCUSATE) [Concomitant]
     Active Substance: DOCUSATE
  9. LEVOTHYROXINE. [Concomitant]
     Active Substance: LEVOTHYROXINE
  10. TYLENOL [Concomitant]
     Active Substance: ACETAMINOPHEN
  11. GAS?X [Concomitant]
     Active Substance: DIMETHICONE
  12. MELATONIN [Concomitant]
     Active Substance: MELATONIN

REACTIONS (8)
  - Pain [Unknown]
  - Adverse event [Unknown]
  - Adverse event [Unknown]
  - Confusional state [Unknown]
  - Diarrhoea [Unknown]
  - Speech disorder [Unknown]
  - Gait inability [Unknown]
  - Ill-defined disorder [Unknown]

NARRATIVE: CASE EVENT DATE: 2021
